FAERS Safety Report 8858556 (Version 2)
Quarter: 2015Q3

REPORT INFORMATION
  Report Type: Report from Study
  Country: US (occurrence: US)
  Receive Date: 20121024
  Receipt Date: 20150907
  Transmission Date: 20151125
  Serious: Yes (Hospitalization, Other)
  Sender: FDA-Public Use
  Company Number: US-ROCHE-1134731

PATIENT
  Sex: Female

DRUGS (6)
  1. RAPTIVA [Suspect]
     Active Substance: EFALIZUMAB
     Indication: PUSTULAR PSORIASIS
     Route: 065
  2. RAPTIVA [Suspect]
     Active Substance: EFALIZUMAB
     Route: 065
  3. RAPTIVA [Suspect]
     Active Substance: EFALIZUMAB
     Route: 065
  4. RAPTIVA [Suspect]
     Active Substance: EFALIZUMAB
     Route: 065
  5. RAPTIVA [Suspect]
     Active Substance: EFALIZUMAB
     Indication: PSORIASIS
     Route: 065
  6. RAPTIVA [Suspect]
     Active Substance: EFALIZUMAB
     Route: 065

REACTIONS (3)
  - Incorrect dose administered [Unknown]
  - Injury [Unknown]
  - Infection [Unknown]
